FAERS Safety Report 9513968 (Version 2)
Quarter: 2013Q3

REPORT INFORMATION
  Report Type: Spontaneous
  Country: US (occurrence: US)
  Receive Date: 20130910
  Receipt Date: 20130910
  Transmission Date: 20140515
  Serious: Yes (Other)
  Sender: FDA-Public Use
  Company Number: US-GILEAD-2013-0081548

PATIENT
  Sex: Female

DRUGS (1)
  1. LETAIRIS [Suspect]
     Indication: PORTOPULMONARY HYPERTENSION
     Dosage: 5 MG, QD
     Dates: start: 20130621

REACTIONS (4)
  - Drug ineffective [Unknown]
  - Pulmonary hypertension [Unknown]
  - Abdominal distension [Unknown]
  - Oedema [Unknown]
